FAERS Safety Report 9622118 (Version 1)
Quarter: 2013Q4

REPORT INFORMATION
  Report Type: Spontaneous
  Country: US (occurrence: US)
  Receive Date: 20131015
  Receipt Date: 20131015
  Transmission Date: 20140711
  Serious: No
  Sender: FDA-Public Use
  Company Number: US-PURDUE-USA-2012-0085754

PATIENT
  Age: 27 Year
  Sex: Female
  Weight: 46.26 kg

DRUGS (1)
  1. BUTRANS [Suspect]
     Indication: COMPLEX REGIONAL PAIN SYNDROME
     Dosage: 10 MCG/HR, UNK
     Route: 062
     Dates: start: 20120415

REACTIONS (7)
  - Application site erythema [Unknown]
  - Application site vesicles [Unknown]
  - Application site pruritus [Unknown]
  - Application site pain [Unknown]
  - Nausea [Unknown]
  - Dizziness [Unknown]
  - Product adhesion issue [Unknown]
